FAERS Safety Report 7755147-9 (Version None)
Quarter: 2011Q3

REPORT INFORMATION
  Report Type: 
  Country: None (occurrence: None)
  Receive Date: 20110916
  Receipt Date: 20110913
  Transmission Date: 20111222
  Serious: No
  Sender: FDA-Public Use
  Company Number: US-PFIZER INC-2011197027

PATIENT
  Sex: Male
  Weight: 145 kg

DRUGS (7)
  1. CHANTIX [Suspect]
     Indication: SMOKING CESSATION THERAPY
     Dosage: 0.5MG, DAILY
     Route: 048
     Dates: start: 20110822
  2. LISINOPRIL [Concomitant]
     Indication: HYPERTENSION
     Dosage: 10MG, DAILY
     Route: 048
     Dates: start: 20100101
  3. OMEPRAZOLE [Concomitant]
     Dosage: UNK
  4. NORCO [Concomitant]
     Dosage: UNK
  5. AMOXICILLIN [Concomitant]
     Indication: OTITIS MEDIA
     Dosage: 100 MG, 2X/DAY
     Dates: start: 20110822, end: 20110901
  6. AURALGAN [Concomitant]
     Indication: OTITIS MEDIA
     Dosage: 2 GTTS EACH EAR OF 2 HOURS PRN
     Dates: start: 20110822
  7. ALLEGRA [Concomitant]
     Dosage: UNK

REACTIONS (5)
  - DISSOCIATION [None]
  - IRRITABILITY [None]
  - MALAISE [None]
  - HYPOAESTHESIA [None]
  - DIZZINESS [None]
